FAERS Safety Report 17665399 (Version 1)
Quarter: 2020Q2

REPORT INFORMATION
  Report Type: Spontaneous
  Country: US (occurrence: US)
  Receive Date: 20200414
  Receipt Date: 20200414
  Transmission Date: 20200713
  Serious: Yes (Life-Threatening, Hospitalization)
  Sender: FDA-Public Use
  Company Number: US-STRIDES ARCOLAB LIMITED-2020SP004639

PATIENT
  Age: 64 Year
  Sex: Female

DRUGS (2)
  1. AMLODIPINE [Suspect]
     Active Substance: AMLODIPINE BESYLATE
     Indication: PRODUCT USED FOR UNKNOWN INDICATION
     Dosage: UNKNOWN NUMBER OF AMLODIPINE PILLS
     Route: 048
  2. LEVOTHYROXINE. [Suspect]
     Active Substance: LEVOTHYROXINE
     Indication: PRODUCT USED FOR UNKNOWN INDICATION
     Dosage: UNKNOWN NUMBER OF LEVOTHYROXINE PILLS
     Route: 048

REACTIONS (10)
  - Metabolic acidosis [Unknown]
  - Shock [Recovered/Resolved]
  - Leukocytosis [Unknown]
  - Rhabdomyolysis [Unknown]
  - Dyspnoea [Unknown]
  - Overdose [Unknown]
  - Nodal rhythm [Recovered/Resolved]
  - Hypotension [Recovered/Resolved]
  - Liver injury [Unknown]
  - Acute kidney injury [Unknown]
